FAERS Safety Report 5918037-X (Version None)
Quarter: 2008Q4

REPORT INFORMATION
  Report Type: 
  Country: None (occurrence: None)
  Receive Date: 20081014
  Receipt Date: 20081006
  Transmission Date: 20090506
  Serious: Yes (Hospitalization, Other)
  Sender: FDA-Public Use
  Company Number: US-ELI_LILLY_AND_COMPANY-US200810001241

PATIENT
  Sex: Female
  Weight: 55.782 kg

DRUGS (7)
  1. BYETTA [Suspect]
     Indication: TYPE 2 DIABETES MELLITUS
     Dosage: 5 UG, 2/D
     Route: 058
     Dates: start: 20070101
  2. ZOCOR [Concomitant]
     Dosage: UNK, UNKNOWN
  3. GLUCOPHAGE [Concomitant]
     Dosage: UNK, UNKNOWN
  4. GLYBURIDE [Concomitant]
     Dosage: UNK, UNKNOWN
  5. FOLIC ACID [Concomitant]
     Dosage: UNK, UNKNOWN
  6. HORMONES NOS [Concomitant]
     Dosage: UNK, UNKNOWN
  7. CALCIUM [Concomitant]
     Dosage: UNK, UNKNOWN

REACTIONS (7)
  - CHOLECYSTECTOMY [None]
  - COLONIC OBSTRUCTION [None]
  - GASTRIC DISORDER [None]
  - GASTRIC OPERATION [None]
  - NAUSEA [None]
  - SCAR [None]
  - WEIGHT DECREASED [None]
